FAERS Safety Report 4360699-5 (Version None)
Quarter: 2004Q2

REPORT INFORMATION
  Report Type: 
  Country: None (occurrence: None)
  Receive Date: 20040514
  Receipt Date: 20010522
  Transmission Date: 20050107
  Serious: Yes (Death)
  Sender: FDA-Public Use
  Company Number: 200112448GDS

PATIENT
  Age: 60 Year
  Sex: Male

DRUGS (5)
  1. AVELOX [Suspect]
     Indication: PNEUMONIA
     Dosage: 400 MG, TOTAL DAILY, ORAL
     Route: 048
     Dates: start: 20010412, end: 20010414
  2. LASIX [Concomitant]
  3. KSR [Concomitant]
  4. TRANSBRONCHO [Concomitant]
  5. ISOSORBIDE DINITRATE [Concomitant]

REACTIONS (4)
  - CARDIAC FAILURE ACUTE [None]
  - DYSPNOEA [None]
  - LEFT VENTRICULAR FAILURE [None]
  - PULMONARY OEDEMA [None]
